FAERS Safety Report 5769271-3 (Version None)
Quarter: 2008Q2

REPORT INFORMATION
  Report Type: 
  Country: None (occurrence: None)
  Receive Date: 20080612
  Receipt Date: 20080325
  Transmission Date: 20081010
  Serious: No
  Sender: FDA-Public Use
  Company Number: US-ABBOTT-08P-163-0444126-00

PATIENT
  Sex: Female
  Weight: 83.99 kg

DRUGS (6)
  1. HUMIRA [Suspect]
     Indication: RHEUMATOID ARTHRITIS
     Route: 058
     Dates: start: 20070901
  2. HUMIRA [Suspect]
     Indication: SYSTEMIC LUPUS ERYTHEMATOSUS
  3. WARFARIN SODIUM [Concomitant]
     Indication: THROMBOSIS
     Route: 048
  4. HYDROCHLOROTHIAZIDE [Concomitant]
     Indication: HYPERTENSION
     Route: 048
  5. DETROL LA [Concomitant]
     Indication: URINARY INCONTINENCE
  6. LISINOPRIL [Concomitant]
     Indication: HYPERTENSION

REACTIONS (3)
  - CYSTITIS [None]
  - LOSS OF CONSCIOUSNESS [None]
  - UPPER RESPIRATORY TRACT INFECTION [None]
